FAERS Safety Report 4914548-4 (Version None)
Quarter: 2006Q1

REPORT INFORMATION
  Report Type: 
  Country: None (occurrence: None)
  Receive Date: 20060216
  Receipt Date: 20051207
  Transmission Date: 20060701
  Serious: Yes (Other)
  Sender: FDA-Public Use
  Company Number: US-MERCK-0512USA01368

PATIENT
  Age: 46 Year
  Sex: Female

DRUGS (1)
  1. VIOXX [Suspect]
     Route: 048
     Dates: end: 20040501

REACTIONS (14)
  - BRONCHITIS [None]
  - CEREBROVASCULAR ACCIDENT [None]
  - DIZZINESS [None]
  - FIBROMYALGIA [None]
  - HYPERLIPIDAEMIA [None]
  - HYPERTENSION [None]
  - HYPOTHYROIDISM [None]
  - INNER EAR DISORDER [None]
  - IRRITABLE BOWEL SYNDROME [None]
  - OSTEOARTHRITIS [None]
  - PAIN OF SKIN [None]
  - PRURITUS [None]
  - SKIN BURNING SENSATION [None]
  - URTICARIA [None]
